FAERS Safety Report 15784131 (Version 1)
Quarter: 2019Q1

REPORT INFORMATION
  Report Type: Spontaneous
  Country: JP (occurrence: JP)
  Receive Date: 20190103
  Receipt Date: 20190103
  Transmission Date: 20190417
  Serious: Yes (Other)
  Sender: FDA-Public Use
  Company Number: JP-ROCHE-2233733

PATIENT
  Sex: Female

DRUGS (2)
  1. HERCEPTIN [Suspect]
     Active Substance: TRASTUZUMAB
     Indication: BREAST CANCER
     Dosage: DOSAGE IS UNCERTAIN.
     Route: 041
  2. PERJETA [Suspect]
     Active Substance: PERTUZUMAB
     Indication: BREAST CANCER
     Dosage: 420MG/14ML
     Route: 041

REACTIONS (7)
  - Cardiac failure [Unknown]
  - Anxiety [Unknown]
  - Bedridden [Unknown]
  - Pallor [Unknown]
  - Diarrhoea [Unknown]
  - Fluid retention [Unknown]
  - Decreased appetite [Unknown]

NARRATIVE: CASE EVENT DATE: 201812
